FAERS Safety Report 10504891 (Version 1)
Quarter: 2014Q3

REPORT INFORMATION
  Report Type: Spontaneous
  Country: US (occurrence: None)
  Receive Date: 20140929
  Receipt Date: 20140929
  Transmission Date: 20150326
  Serious: Yes (Hospitalization, Other)
  Sender: FDA-Public Use
  Company Number: US-2014-11019

PATIENT
  Age: 26 Year
  Sex: Male
  Weight: 58 kg

DRUGS (4)
  1. IBUPROFEN. [Concomitant]
     Active Substance: IBUPROFEN
  2. FANPAPT (LOPERIDONE) [Concomitant]
  3. ABILIFY MAINTENA [Suspect]
     Active Substance: ARIPIPRAZOLE
     Indication: SCHIZOPHRENIA
     Dosage: 400MG, QM, IM (DEPOT)
     Route: 030
     Dates: start: 20131111
  4. DEPAKOTE [Concomitant]
     Active Substance: DIVALPROEX SODIUM

REACTIONS (4)
  - Drug ineffective [None]
  - Suicide attempt [None]
  - Hallucination, auditory [None]
  - Overdose [None]

NARRATIVE: CASE EVENT DATE: 201405
